FAERS Safety Report 17827067 (Version 1)
Quarter: 2020Q2

REPORT INFORMATION
  Report Type: Report from Study
  Country: JP (occurrence: JP)
  Receive Date: 20200527
  Receipt Date: 20200527
  Transmission Date: 20200714
  Serious: Yes (Life-Threatening, Hospitalization, Other)
  Sender: FDA-Public Use
  Company Number: JP-AMGEN-JPNCT2020079400

PATIENT
  Age: 85 Year
  Sex: Male

DRUGS (23)
  1. CANCIDAS [Concomitant]
     Active Substance: CASPOFUNGIN ACETATE
     Dosage: 70 MG
     Route: 065
     Dates: start: 20191005, end: 20191005
  2. FIRSTCIN [Concomitant]
     Active Substance: CEFOZOPRAN HYDROCHLORIDE
     Dosage: 4 G
     Route: 065
     Dates: start: 20190920, end: 20190926
  3. MEROPENEM. [Concomitant]
     Active Substance: MEROPENEM
     Dosage: 2 G
     Route: 065
     Dates: start: 20190927, end: 20191004
  4. MIYA-BM [Concomitant]
     Active Substance: CLOSTRIDIUM BUTYRICUM SPORES STRAIN M-55
     Indication: CONSTIPATION
     Dosage: 3 DF
     Route: 048
     Dates: start: 20190704
  5. FUNGUARD [Concomitant]
     Active Substance: MICAFUNGIN SODIUM
     Dosage: 150 MG
     Route: 065
     Dates: start: 20191003, end: 20191004
  6. DARBEPOETIN ALFA [Suspect]
     Active Substance: DARBEPOETIN ALFA
     Dosage: 240 MICROGRAM, QWK
     Route: 058
     Dates: start: 20190404, end: 20190516
  7. CARVEDILOL. [Concomitant]
     Active Substance: CARVEDILOL
     Indication: HYPERTENSION
     Dosage: 2.5 MG
     Route: 048
  8. FILGRASTIM [Concomitant]
     Active Substance: FILGRASTIM
     Dosage: 75 UG
     Route: 065
     Dates: start: 20191107, end: 20191115
  9. CUBICIN [Concomitant]
     Active Substance: DAPTOMYCIN
     Dosage: 225 MG
     Route: 065
     Dates: start: 20191003, end: 20191008
  10. FINIBAX [Concomitant]
     Active Substance: DORIPENEM MONOHYDRATE
     Dosage: 1 G
     Route: 065
     Dates: start: 20191004, end: 20191006
  11. ZYVOX [Concomitant]
     Active Substance: LINEZOLID
     Dosage: 1200 MG
     Route: 065
     Dates: start: 20191009, end: 20191018
  12. DARBEPOETIN ALFA [Suspect]
     Active Substance: DARBEPOETIN ALFA
     Dosage: 120 MICROGRAM, QWK
     Route: 058
     Dates: start: 20190523, end: 20190711
  13. SENNOSIDE [SENNOSIDE A+B CALCIUM] [Concomitant]
     Active Substance: SENNOSIDES A AND B
     Indication: CONSTIPATION
     Dosage: 24 MG
     Route: 048
  14. FIRSTCIN [Concomitant]
     Active Substance: CEFOZOPRAN HYDROCHLORIDE
     Dosage: 4 G
     Route: 065
     Dates: start: 20190704, end: 20190711
  15. TELMISARTAN. [Concomitant]
     Active Substance: TELMISARTAN
     Indication: HYPERTENSION
     Dosage: 20 MG
     Route: 048
  16. CEFEPIME [Concomitant]
     Active Substance: CEFEPIME HYDROCHLORIDE
     Dosage: 4 G
     Route: 065
     Dates: start: 20191107, end: 20191115
  17. DARBEPOETIN ALFA [Suspect]
     Active Substance: DARBEPOETIN ALFA
     Indication: MYELODYSPLASTIC SYNDROME
     Dosage: 240 MICROGRAM, QWK
     Route: 058
     Dates: start: 20190718, end: 20190920
  18. FILGRASTIM [Concomitant]
     Active Substance: FILGRASTIM
     Dosage: 75 UG
     Route: 065
     Dates: start: 20191004, end: 20191024
  19. VANCOMYCIN [Concomitant]
     Active Substance: VANCOMYCIN
     Dosage: 1 G
     Route: 065
     Dates: start: 20190926, end: 20191003
  20. AZOSEMIDE [Concomitant]
     Active Substance: AZOSEMIDE
     Indication: HYPERTENSION
     Dosage: 30 MG
     Route: 048
  21. EPINASTINE. [Concomitant]
     Active Substance: EPINASTINE HYDROCHLORIDE
     Dosage: 20 MG
     Route: 048
     Dates: start: 20190411
  22. RESTAMIN KOWA [Concomitant]
     Dosage: 60 MG
     Route: 048
     Dates: start: 20190411, end: 20190424
  23. CANCIDAS [Concomitant]
     Active Substance: CASPOFUNGIN ACETATE
     Dosage: 50 MG
     Route: 065
     Dates: start: 20191006, end: 20191012

REACTIONS (11)
  - Pneumonia [Recovered/Resolved]
  - Skin infection [Recovered/Resolved]
  - Platelet count decreased [Not Recovered/Not Resolved]
  - Myelodysplastic syndrome [Not Recovered/Not Resolved]
  - Skin infection [Recovered/Resolved]
  - Skin infection [Recovered/Resolved]
  - Neutrophil count decreased [Recovered/Resolved]
  - Neutrophil count decreased [Recovered/Resolved]
  - Transformation to acute myeloid leukaemia [Not Recovered/Not Resolved]
  - Rash [Recovered/Resolved]
  - Fungal infection [Recovered/Resolved]

NARRATIVE: CASE EVENT DATE: 20190411
